FAERS Safety Report 9486996 (Version 1)
Quarter: 2013Q3

REPORT INFORMATION
  Report Type: Spontaneous
  Country: CN (occurrence: CN)
  Receive Date: 20130829
  Receipt Date: 20130829
  Transmission Date: 20140515
  Serious: Yes (Hospitalization)
  Sender: FDA-Public Use
  Company Number: CN-BAYER-2013-103899

PATIENT
  Age: 53 Year
  Sex: Female

DRUGS (1)
  1. ULTRAVIST 370 [Suspect]
     Indication: COMPUTERISED TOMOGRAM
     Dosage: 80 ML, ONCE
     Dates: start: 20130827, end: 20130827

REACTIONS (6)
  - Iodine allergy [None]
  - Loss of consciousness [None]
  - Dyspnoea [None]
  - Swelling face [None]
  - Anxiety [None]
  - Hypoaesthesia oral [None]
